FAERS Safety Report 23015563 (Version 1)
Quarter: 2023Q4

REPORT INFORMATION
  Report Type: Spontaneous
  Country: US (occurrence: US)
  Receive Date: 20231002
  Receipt Date: 20231002
  Transmission Date: 20240110
  Serious: Yes (Other)
  Sender: FDA-Public Use
  Company Number: US-PROCTER_AND_GAMBLE-GS23106766

PATIENT

DRUGS (2)
  1. CREST PRO-HEALTH ADVANCED GUM RESTORE DEEP CLEAN [Suspect]
     Active Substance: STANNOUS FLUORIDE
     Route: 002
  2. UNSPECIFIED INGREDIENT [Suspect]
     Active Substance: UNSPECIFIED INGREDIENT
     Route: 048

REACTIONS (1)
  - Anaphylactic reaction [Unknown]
